FAERS Safety Report 17161402 (Version 1)
Quarter: 2019Q4

REPORT INFORMATION
  Report Type: Spontaneous
  Country: DE (occurrence: DE)
  Receive Date: 20191216
  Receipt Date: 20191216
  Transmission Date: 20200122
  Serious: Yes (Hospitalization)
  Sender: FDA-Public Use
  Company Number: DE-UCBSA-082678

PATIENT
  Sex: Female
  Weight: 58 kg

DRUGS (4)
  1. LEVETIRACETAM NEURAXPHARM [Suspect]
     Active Substance: LEVETIRACETAM
     Indication: EPILEPSY
     Dosage: 1000 MG, ONCE DAILY (QD)
     Dates: start: 20120531
  2. TRILEPTAL AL [Concomitant]
     Indication: EPILEPSY
     Dosage: STRENGTH: 600 MG, FREQUENCY 1/2-1/2-1/2
     Dates: start: 201008
  3. TOPIRAMATE AL [Concomitant]
     Indication: EPILEPSY
     Dosage: 50 MG, 2X/DAY (BID)
     Dates: start: 20120531, end: 20130328
  4. KEPPRA [Suspect]
     Active Substance: LEVETIRACETAM
     Indication: EPILEPSY
     Dosage: UNK

REACTIONS (2)
  - Seizure [Unknown]
  - Maternal exposure before pregnancy [Unknown]

NARRATIVE: CASE EVENT DATE: 2012
